FAERS Safety Report 9392667 (Version 1)
Quarter: 2013Q3

REPORT INFORMATION
  Report Type: Spontaneous
  Country: US (occurrence: None)
  Receive Date: 20130708
  Receipt Date: 20130708
  Transmission Date: 20140515
  Serious: Yes (Hospitalization)
  Sender: FDA-Public Use
  Company Number: None

PATIENT
  Age: 69 Year
  Sex: Female
  Weight: 57.72 kg

DRUGS (3)
  1. CARBOPLATIN [Suspect]
  2. PACLITAXEL (TAXOL) [Suspect]
  3. COUMADIN [Concomitant]

REACTIONS (6)
  - Presyncope [None]
  - Febrile neutropenia [None]
  - Haematemesis [None]
  - Abdominal hernia [None]
  - Anaemia [None]
  - International normalised ratio increased [None]
